FAERS Safety Report 6155502-7 (Version None)
Quarter: 2009Q2

REPORT INFORMATION
  Report Type: 
  Country: None (occurrence: None)
  Receive Date: 20090415
  Receipt Date: 20090406
  Transmission Date: 20091009
  Serious: Yes (Disabling)
  Sender: FDA-Public Use
  Company Number: BR-ABBOTT-09P-020-0564877-00

PATIENT
  Sex: Male
  Weight: 72 kg

DRUGS (3)
  1. RITONAVIR [Suspect]
     Indication: HIV INFECTION
     Route: 048
  2. TMC114 [Concomitant]
     Indication: HIV INFECTION
     Dates: end: 20090329
  3. TMC125 [Concomitant]
     Indication: HIV INFECTION
     Dates: end: 20090329

REACTIONS (1)
  - OSTEONECROSIS [None]
